FAERS Safety Report 25206926 (Version 1)
Quarter: 2025Q2

REPORT INFORMATION
  Report Type: Spontaneous
  Country: CL (occurrence: CL)
  Receive Date: 20250417
  Receipt Date: 20250417
  Transmission Date: 20250716
  Serious: Yes (Hospitalization)
  Sender: MACLEODS
  Company Number: CL-MLMSERVICE-20250402-PI458721-00049-5

PATIENT

DRUGS (4)
  1. ESCITALOPRAM [Suspect]
     Active Substance: ESCITALOPRAM OXALATE
     Indication: Bipolar disorder
     Route: 065
     Dates: start: 2017, end: 202211
  2. TRAMADOL [Suspect]
     Active Substance: TRAMADOL
     Indication: Pain management
     Dosage: 100 MG/2 ML (5 DROPS)
     Route: 048
     Dates: start: 202210, end: 202211
  3. AMITRIPTYLINE [Suspect]
     Active Substance: AMITRIPTYLINE
     Indication: Product used for unknown indication
     Route: 065
     Dates: start: 20221020, end: 20221022
  4. ACETAMINOPHEN\CODEINE PHOSPHATE [Suspect]
     Active Substance: ACETAMINOPHEN\CODEINE PHOSPHATE
     Indication: Pain management
     Route: 048
     Dates: start: 202210

REACTIONS (2)
  - Mania [Recovering/Resolving]
  - Mania [Recovered/Resolved]

NARRATIVE: CASE EVENT DATE: 20221001
